FAERS Safety Report 10152069 (Version 1)
Quarter: 2014Q2

REPORT INFORMATION
  Report Type: Spontaneous
  Country: US (occurrence: US)
  Receive Date: 20140505
  Receipt Date: 20140505
  Transmission Date: 20141212
  Serious: No
  Sender: FDA-Public Use
  Company Number: US-BRISTOL-MYERS SQUIBB COMPANY-20580999

PATIENT
  Age: 65 Year
  Sex: Female

DRUGS (1)
  1. FARXIGA [Suspect]
     Dates: start: 20140319

REACTIONS (1)
  - Chest X-ray abnormal [Unknown]
